FAERS Safety Report 8100694 (Version 2)
Quarter: 2013Q4

REPORT INFORMATION
  Report Type: Spontaneous
  Country: US (occurrence: US)
  Receive Date: 20110822
  Receipt Date: 20131202
  Transmission Date: 20140711
  Serious: Yes (Hospitalization, Other)
  Sender: FDA-Public Use
  Company Number: US-BAYER-2011-075075

PATIENT
  Sex: Female

DRUGS (6)
  1. YAZ [Suspect]
     Dosage: UNK
  2. YASMIN [Suspect]
     Dosage: UNK
  3. WELLBUTRIN [Concomitant]
     Dosage: 300 MG DAILY
     Dates: start: 20090526, end: 20090619
  4. PERCOCET 5/325 [Concomitant]
     Dosage: UNK
  5. SENOKOT-S [Concomitant]
     Dosage: UNK
  6. LEVAQUIN [Concomitant]
     Dosage: UNK

REACTIONS (5)
  - Gallbladder injury [Unknown]
  - Injury [Unknown]
  - Pain [Unknown]
  - Cholecystitis acute [None]
  - Pancreatitis [None]
